FAERS Safety Report 14150343 (Version 1)
Quarter: 2017Q4

REPORT INFORMATION
  Report Type: Spontaneous
  Country: US (occurrence: US)
  Receive Date: 20171101
  Receipt Date: 20171101
  Transmission Date: 20180321
  Serious: Yes (Other)
  Sender: FDA-Public Use
  Company Number: US-MATRIXX INITIATIVES, INC.-2032985

PATIENT
  Age: 73 Year
  Sex: Female
  Weight: 63.64 kg

DRUGS (3)
  1. UNSPECIFIED COLD MEDICATIONS [Suspect]
     Active Substance: UNSPECIFIED INGREDIENT
  2. ZICAM COLD REMEDY RAPIDMELTS [Suspect]
     Active Substance: HOMEOPATHICS\ZINC ACETATE ANHYDROUS\ZINC GLUCONATE
     Indication: NASOPHARYNGITIS
     Route: 048
  3. UNSPECIFIED PROBIOTICS [Concomitant]

REACTIONS (1)
  - Hypertension [None]
